FAERS Safety Report 24211852 (Version 3)
Quarter: 2024Q4

REPORT INFORMATION
  Report Type: Spontaneous
  Country: US (occurrence: US)
  Receive Date: 20240814
  Receipt Date: 20241202
  Transmission Date: 20250114
  Serious: Yes (Other)
  Sender: BRISTOL-MYERS SQUIBB COMPANY
  Company Number: US-BRISTOL-MYERS SQUIBB COMPANY-2024-127302

PATIENT
  Age: 89 Year
  Sex: Female
  Weight: 53.52 kg

DRUGS (2)
  1. REVLIMID [Suspect]
     Active Substance: LENALIDOMIDE
     Indication: Myelodysplastic syndrome
     Route: 048
  2. REVLIMID [Suspect]
     Active Substance: LENALIDOMIDE
     Dosage: 2.5MG ORALLY EVERY OTHER DAY ON DAYS 1-21 THEN 7 DAYS OFF
     Route: 048

REACTIONS (10)
  - Diarrhoea [Recovering/Resolving]
  - Fatigue [Recovering/Resolving]
  - Product prescribing issue [Unknown]
  - Therapy interrupted [Unknown]
  - Balance disorder [Unknown]
  - Off label use [Unknown]
  - Dizziness [Recovering/Resolving]
  - Dry eye [Recovering/Resolving]
  - Cataract [Recovering/Resolving]
  - Constipation [Recovering/Resolving]
